FAERS Safety Report 15216332 (Version 1)
Quarter: 2018Q3

REPORT INFORMATION
  Report Type: Spontaneous
  Country: DE (occurrence: DE)
  Receive Date: 20180730
  Receipt Date: 20180730
  Transmission Date: 20181010
  Serious: Yes (Other)
  Sender: FDA-Public Use
  Company Number: DE-VIFOR (INTERNATIONAL) INC.-VIT-2018-07322

PATIENT
  Age: 45 Year
  Sex: Female

DRUGS (10)
  1. FUROSEMIDE. [Concomitant]
     Active Substance: FUROSEMIDE
  2. XIPAMIDE [Concomitant]
     Active Substance: XIPAMIDE
  3. VELPHORO [Suspect]
     Active Substance: FERRIC OXYHYDROXIDE
     Indication: PRODUCT USED FOR UNKNOWN INDICATION
     Dosage: 3?5 TABLET OF 500 MG/24HOUR
     Route: 048
     Dates: start: 20150401, end: 201805
  4. BISOPROLOL [Concomitant]
     Active Substance: BISOPROLOL
  5. OXYCODON [Concomitant]
     Active Substance: OXYCODONE
  6. PRAMIPEXOLE. [Concomitant]
     Active Substance: PRAMIPEXOLE
  7. ATORVASTATIN [Concomitant]
     Active Substance: ATORVASTATIN
  8. ASPIRIN. [Concomitant]
     Active Substance: ASPIRIN
  9. NIFEDIPINE. [Concomitant]
     Active Substance: NIFEDIPINE
  10. PARACETAMOL [Concomitant]
     Active Substance: ACETAMINOPHEN

REACTIONS (3)
  - Laboratory test abnormal [Not Recovered/Not Resolved]
  - Serum ferritin increased [Not Recovered/Not Resolved]
  - Transferrin saturation increased [Not Recovered/Not Resolved]

NARRATIVE: CASE EVENT DATE: 2018
